FAERS Safety Report 12668264 (Version 1)
Quarter: 2016Q3

REPORT INFORMATION
  Report Type: Spontaneous
  Country: FR (occurrence: FR)
  Receive Date: 20160819
  Receipt Date: 20160819
  Transmission Date: 20161109
  Serious: Yes (Other)
  Sender: FDA-Public Use
  Company Number: FR-WARNER CHILCOTT, LLC-1056537

PATIENT
  Age: 79 Year
  Sex: Female

DRUGS (12)
  1. ACTONEL [Suspect]
     Active Substance: RISEDRONATE SODIUM
     Indication: OSTEOPOROSIS
     Route: 048
     Dates: start: 20160704, end: 20160704
  2. LATANOPROST. [Concomitant]
     Active Substance: LATANOPROST
  3. DOLIPRANE [Concomitant]
     Active Substance: ACETAMINOPHEN
  4. MELOXICAM. [Concomitant]
     Active Substance: MELOXICAM
  5. MACROGOL (MACROGOL) [Concomitant]
  6. VIVAMYNE (VITAMINS NOS) [Concomitant]
  7. FLECAINIDE ACETATE. [Concomitant]
     Active Substance: FLECAINIDE ACETATE
  8. LANSOPRAZOLE. [Concomitant]
     Active Substance: LANSOPRAZOLE
  9. KLEAN PREP (MACROGOL 3350, KCL, NA-BICARB, NACL, SODIUM SULFATE ANHYRO [Concomitant]
  10. UVEDOSE (COLECALCIFEROL) [Concomitant]
  11. ZYMAD (COLECALCIFEROL) [Concomitant]
     Dates: start: 20160602
  12. FUROSEMIDE. [Concomitant]
     Active Substance: FUROSEMIDE

REACTIONS (9)
  - Visual impairment [Recovered/Resolved]
  - Headache [Recovered/Resolved]
  - Chills [Recovered/Resolved]
  - Hyperhidrosis [Recovered/Resolved]
  - Dysphagia [Recovered/Resolved]
  - Arthralgia [Recovered/Resolved]
  - Nausea [Recovered/Resolved]
  - Cough [Recovered/Resolved]
  - Palpitations [Recovered/Resolved]
